FAERS Safety Report 4376830-1 (Version None)
Quarter: 2004Q2

REPORT INFORMATION
  Report Type: 
  Country: None (occurrence: None)
  Receive Date: 20040609
  Receipt Date: 20040430
  Transmission Date: 20050107
  Serious: Yes (Hospitalization)
  Sender: FDA-Public Use
  Company Number: PHEH2004US04802

PATIENT
  Age: 86 Year
  Sex: Male

DRUGS (5)
  1. GLEEVEC [Suspect]
     Indication: SARCOMA
     Dosage: 100 MG, TID, ORAL
     Route: 048
     Dates: start: 20010501, end: 20040201
  2. COREG [Concomitant]
  3. ALDACTONE [Concomitant]
  4. COZAAR [Concomitant]
  5. GLEEVEC [Concomitant]

REACTIONS (2)
  - CARDIAC FAILURE CONGESTIVE [None]
  - CARDIAC PACEMAKER INSERTION [None]
